FAERS Safety Report 6075370-1 (Version None)
Quarter: 2009Q1

REPORT INFORMATION
  Report Type: 
  Country: None (occurrence: None)
  Receive Date: 20090212
  Receipt Date: 20081009
  Transmission Date: 20090719
  Serious: No
  Sender: FDA-Public Use
  Company Number: US-BAUSCH-2008BL004341

PATIENT
  Age: 51 Year
  Sex: Female

DRUGS (6)
  1. FLUNISOLIDE NASAL SOLUTION USP 0.025% [Suspect]
     Indication: SEASONAL ALLERGY
     Route: 045
     Dates: start: 20080505, end: 20080801
  2. FLUNISOLIDE NASAL SOLUTION USP 0.025% [Suspect]
     Indication: SINUSITIS
     Route: 045
     Dates: start: 20080505, end: 20080801
  3. LEVAQUIN [Concomitant]
  4. TUSSIONEX ^LABQUIFAR^ [Concomitant]
  5. AUGMENTIN '125' [Concomitant]
  6. AVELOX [Concomitant]

REACTIONS (3)
  - NASAL OEDEMA [None]
  - PRODUCT QUALITY ISSUE [None]
  - RHINALGIA [None]
